FAERS Safety Report 8231310-8 (Version None)
Quarter: 2012Q1

REPORT INFORMATION
  Report Type: 
  Country: None (occurrence: None)
  Receive Date: 20120323
  Receipt Date: 20120319
  Transmission Date: 20120608
  Serious: Yes (Other)
  Sender: FDA-Public Use
  Company Number: US-PFIZER INC-2010146348

PATIENT
  Age: 83 Year
  Sex: Male

DRUGS (2)
  1. XALATAN [Suspect]
     Dosage: UNK
  2. XALATAN [Suspect]
     Indication: GLAUCOMA
     Dosage: 1 GTT IN LEFT EYE, 1X/DAY
     Route: 047
     Dates: start: 20100101

REACTIONS (6)
  - DIZZINESS [None]
  - ABDOMINAL DISCOMFORT [None]
  - HYPOACUSIS [None]
  - FEELING ABNORMAL [None]
  - EYE IRRITATION [None]
  - YAWNING [None]
